FAERS Safety Report 10737402 (Version 1)
Quarter: 2015Q1

REPORT INFORMATION
  Report Type: Spontaneous
  Country: US (occurrence: None)
  Receive Date: 20150122
  Receipt Date: 20150122
  Transmission Date: 20150721
  Serious: Yes (Hospitalization)
  Sender: FDA-Public Use
  Company Number: 001853940A

PATIENT
  Age: 52 Year
  Sex: Female

DRUGS (11)
  1. PROACTIV PLUS PORE TARGETING TREATMENT [Suspect]
     Active Substance: BENZOYL PEROXIDE
     Indication: ACNE
     Dosage: BID DERMAL
     Route: 061
     Dates: start: 20141013, end: 20141014
  2. PROACTIV SKIN LIGHTENING [Suspect]
     Active Substance: HYDROQUINONE
     Indication: ACNE
     Dosage: BID DERMAL ?
     Route: 061
     Dates: start: 20141013, end: 20141014
  3. LAMICTAL [Concomitant]
     Active Substance: LAMOTRIGINE
  4. PROACTIVPLUS SKIN SMOOTHING EXFOLIATOR [Suspect]
     Active Substance: BENZOYL PEROXIDE
     Indication: ACNE
     Dosage: BID DERMAL
     Route: 061
     Dates: start: 20141013, end: 20141014
  5. PROZAC [Concomitant]
     Active Substance: FLUOXETINE HYDROCHLORIDE
  6. PROACTIV DEEP CLEANSING WASH [Suspect]
     Active Substance: SALICYLIC ACID
     Indication: ACNE
     Dosage: BID DERMAL
     Route: 061
     Dates: start: 20141013, end: 20141014
  7. PROACTIV PLUS CLEANSING BODY BAR [Suspect]
     Active Substance: SALICYLIC ACID
     Indication: ACNE
     Dosage: BID DERMAL
     Route: 061
     Dates: start: 20141013, end: 20141014
  8. PROACTIV PLUS COMPLEXION PERFECTING HYDRATOR [Suspect]
     Active Substance: SALICYLIC ACID
     Indication: ACNE
     Dosage: BID DERMAL
     Route: 061
     Dates: start: 20141013, end: 20141014
  9. PROACTIV PLUS EMERGENCY BLEMISH RELIEF [Suspect]
     Active Substance: BENZOYL PEROXIDE
     Indication: ACNE
     Route: 061
     Dates: start: 20141013, end: 20141014
  10. VITAMINS [Concomitant]
     Active Substance: VITAMINS
  11. TRAZODONE [Concomitant]
     Active Substance: TRAZODONE HYDROCHLORIDE

REACTIONS (3)
  - Burns second degree [None]
  - Application site burn [None]
  - Staphylococcal infection [None]

NARRATIVE: CASE EVENT DATE: 20141014
